FAERS Safety Report 5034547-4 (Version None)
Quarter: 2006Q2

REPORT INFORMATION
  Report Type: 
  Country: None (occurrence: None)
  Receive Date: 20060621
  Receipt Date: 20060610
  Transmission Date: 20061013
  Serious: Yes (Hospitalization, Other)
  Sender: FDA-Public Use
  Company Number: 2006073578

PATIENT
  Age: 26 Year
  Sex: Female
  Weight: 58.9676 kg

DRUGS (3)
  1. CHILDREN'S PEDIACARE LONG ACTING COUGH PLUS COLD (PSEUDOEPHEDRINE,  DE [Suspect]
     Dosage: 4 OZ AT ONCE, ORAL
     Route: 048
     Dates: start: 20060610, end: 20060610
  2. MEDINITE (DEXTROMETHORPHAN HYDROBROMIDE, DOXYLAMINE SUCCINATE, EPHEDRI [Suspect]
     Dosage: 12 OZ AT ONCE, ORAL
     Route: 048
     Dates: start: 20060610, end: 20060610
  3. SALBUTAMOL (SALBUTAMOL) [Concomitant]

REACTIONS (2)
  - INCORRECT DOSE ADMINISTERED [None]
  - SOMNOLENCE [None]
